FAERS Safety Report 17051249 (Version 5)
Quarter: 2025Q3

REPORT INFORMATION
  Report Type: Spontaneous
  Country: EU (occurrence: EU)
  Receive Date: 20191120
  Receipt Date: 20250709
  Transmission Date: 20251021
  Serious: Yes (Other)
  Sender: AUROBINDO
  Company Number: EU-NOVPHSZ-PHHY2019FR206837

PATIENT
  Age: 21 Year
  Sex: Male

DRUGS (22)
  1. VORICONAZOLE [Suspect]
     Active Substance: VORICONAZOLE
     Indication: Bronchopulmonary aspergillosis
     Route: 065
  2. VORICONAZOLE [Suspect]
     Active Substance: VORICONAZOLE
     Indication: Cerebral aspergillosis
  3. VORICONAZOLE [Suspect]
     Active Substance: VORICONAZOLE
     Indication: Chronic granulomatous disease
  4. VORICONAZOLE [Suspect]
     Active Substance: VORICONAZOLE
     Indication: Aspergillus infection
  5. POSACONAZOLE [Suspect]
     Active Substance: POSACONAZOLE
     Indication: Bronchopulmonary aspergillosis
     Route: 065
  6. POSACONAZOLE [Suspect]
     Active Substance: POSACONAZOLE
     Indication: Cerebral aspergillosis
  7. POSACONAZOLE [Suspect]
     Active Substance: POSACONAZOLE
     Indication: Aspergillus infection
  8. POSACONAZOLE [Suspect]
     Active Substance: POSACONAZOLE
     Indication: Chronic granulomatous disease
  9. AMPHOTERICIN B [Suspect]
     Active Substance: AMPHOTERICIN B
     Indication: Bronchopulmonary aspergillosis
     Route: 065
  10. AMPHOTERICIN B [Suspect]
     Active Substance: AMPHOTERICIN B
     Indication: Chronic granulomatous disease
  11. AMPHOTERICIN B [Suspect]
     Active Substance: AMPHOTERICIN B
     Indication: Cerebral aspergillosis
  12. AMPHOTERICIN B [Suspect]
     Active Substance: AMPHOTERICIN B
     Indication: Aspergillus infection
  13. CASPOFUNGIN [Suspect]
     Active Substance: CASPOFUNGIN
     Indication: Bronchopulmonary aspergillosis
     Route: 065
  14. CASPOFUNGIN [Suspect]
     Active Substance: CASPOFUNGIN
     Indication: Cerebral aspergillosis
  15. CASPOFUNGIN [Suspect]
     Active Substance: CASPOFUNGIN
     Indication: Chronic granulomatous disease
  16. INTERFERON GAMMA [Suspect]
     Active Substance: INTERFERON GAMMA
     Indication: Bronchopulmonary aspergillosis
     Route: 065
  17. INTERFERON GAMMA [Suspect]
     Active Substance: INTERFERON GAMMA
     Indication: Cerebral aspergillosis
  18. INTERFERON GAMMA [Suspect]
     Active Substance: INTERFERON GAMMA
     Indication: Chronic granulomatous disease
  19. INTERFERON GAMMA [Suspect]
     Active Substance: INTERFERON GAMMA
     Indication: Aspergillus infection
  20. AMPHOTERICIN B [Concomitant]
     Active Substance: AMPHOTERICIN B
     Indication: Bronchopulmonary aspergillosis
     Route: 065
  21. AMPHOTERICIN B [Concomitant]
     Active Substance: AMPHOTERICIN B
     Indication: Cerebral aspergillosis
  22. ISAVUCONAZOLE [Concomitant]
     Active Substance: ISAVUCONAZOLE
     Indication: Antifungal treatment
     Dosage: 200 MG, QD
     Route: 048

REACTIONS (3)
  - Photosensitivity reaction [Unknown]
  - Therapy non-responder [Recovered/Resolved]
  - Drug ineffective [Unknown]
